FAERS Safety Report 14140838 (Version 5)
Quarter: 2018Q2

REPORT INFORMATION
  Report Type: Spontaneous
  Country: US (occurrence: US)
  Receive Date: 20171030
  Receipt Date: 20180604
  Transmission Date: 20180711
  Serious: Yes (Other)
  Sender: FDA-Public Use
  Company Number: US-BRISTOL-MYERS SQUIBB COMPANY-BMS-2017-094071

PATIENT
  Sex: Male
  Weight: 101.1 kg

DRUGS (2)
  1. YERVOY [Suspect]
     Active Substance: IPILIMUMAB
     Indication: MALIGNANT MELANOMA
     Dosage: 1025 MG, Q3WK
     Route: 042
     Dates: start: 20170830
  2. YERVOY [Suspect]
     Active Substance: IPILIMUMAB
     Indication: PRODUCT USED FOR UNKNOWN INDICATION
     Dosage: 990 MG, UNK
     Route: 065

REACTIONS (4)
  - Rash [Unknown]
  - Diarrhoea [Unknown]
  - Autoimmune disorder [Unknown]
  - Pneumonia [Unknown]
